FAERS Safety Report 8255857-3 (Version None)
Quarter: 2012Q2

REPORT INFORMATION
  Report Type: 
  Country: None (occurrence: None)
  Receive Date: 20120403
  Receipt Date: 20120330
  Transmission Date: 20120825
  Serious: Yes (Death)
  Sender: FDA-Public Use
  Company Number: GB-ROCHE-1037000

PATIENT
  Sex: Female

DRUGS (20)
  1. ACETAMINOPHEN AND CODEINE PHOSPHATE [Concomitant]
     Dates: start: 20100211
  2. LATANOPROST [Concomitant]
     Dates: start: 20100205
  3. LEVOTHYROXINE SODIUM [Concomitant]
     Dates: start: 20100205
  4. LANTUS [Concomitant]
     Dates: start: 20091214
  5. FUROSEMIDE [Concomitant]
     Dates: start: 20100205
  6. OLMESARTAN MEDOXOMIL [Concomitant]
     Dates: start: 20100205
  7. AMLODIPINE [Concomitant]
  8. LANSOPRAZOLE [Concomitant]
  9. HYDROCORTISONE CREAM [Concomitant]
     Dates: start: 20091214
  10. ACTRAPID HUMAN [Concomitant]
  11. LUCENTIS [Suspect]
     Indication: PRODUCT USED FOR UNKNOWN INDICATION
     Route: 050
  12. OMEPRAZOLE [Concomitant]
  13. ACETAMINOPHEN [Concomitant]
     Dates: start: 20100205
  14. BISOPROLOL FUMARATE [Concomitant]
     Dates: start: 20100205
  15. CETRABEN EMOLLIENT CREAM (UNITED KINGDOM) [Concomitant]
  16. ASPIRIN [Concomitant]
     Dates: start: 20100205
  17. IPRATROPIUM BROMIDE [Concomitant]
     Dates: start: 20091214
  18. GAVISCON ADVANCE (UNITED KINGDOM) [Concomitant]
  19. ISOSORBIDE MONONITRATE [Concomitant]
     Dates: start: 20100205
  20. CLOTRIMAZOLE [Concomitant]
     Dates: start: 20091214

REACTIONS (1)
  - DEATH [None]
